FAERS Safety Report 21004418 (Version 1)
Quarter: 2022Q2

REPORT INFORMATION
  Report Type: Spontaneous
  Country: JP (occurrence: JP)
  Receive Date: 20220624
  Receipt Date: 20220624
  Transmission Date: 20220720
  Serious: Yes (Hospitalization, Other)
  Sender: FDA-Public Use
  Company Number: JP-AMGEN-JPNSP2022089782

PATIENT
  Sex: Female

DRUGS (1)
  1. EVENITY [Suspect]
     Active Substance: ROMOSOZUMAB-AQQG
     Indication: Osteoporosis
     Dosage: 210 MILLIGRAM, QMO
     Route: 058
     Dates: start: 201912, end: 202012

REACTIONS (3)
  - Peripheral ischaemia [Recovered/Resolved with Sequelae]
  - Peripheral arterial occlusive disease [Unknown]
  - Thermal burn [Unknown]

NARRATIVE: CASE EVENT DATE: 20200601
